FAERS Safety Report 15345965 (Version 2)
Quarter: 2018Q4

REPORT INFORMATION
  Report Type: Spontaneous
  Country: US (occurrence: US)
  Receive Date: 20180904
  Receipt Date: 20181001
  Transmission Date: 20190204
  Serious: No
  Sender: FDA-Public Use
  Company Number: US-ASTRAZENECA-2018SF03309

PATIENT
  Sex: Female
  Weight: 84.4 kg

DRUGS (2)
  1. PULMICORT TURBUHALER [Suspect]
     Active Substance: BUDESONIDE
     Indication: ASTHMA
     Route: 055
     Dates: start: 2016
  2. QVAR [Concomitant]
     Active Substance: BECLOMETHASONE DIPROPIONATE

REACTIONS (12)
  - Cataract [Not Recovered/Not Resolved]
  - Intentional product misuse [Unknown]
  - Device failure [Unknown]
  - Product dose omission [Unknown]
  - Body height decreased [Unknown]
  - Muscle fatigue [Unknown]
  - Fatigue [Unknown]
  - Breath sounds abnormal [Unknown]
  - Astigmatism [Not Recovered/Not Resolved]
  - Ear congestion [Recovered/Resolved]
  - Visual impairment [Unknown]
  - Device issue [Unknown]

NARRATIVE: CASE EVENT DATE: 201710
